FAERS Safety Report 7162824-X (Version None)
Quarter: 2010Q4

REPORT INFORMATION
  Report Type: 
  Country: None (occurrence: None)
  Receive Date: 20101215
  Receipt Date: 20091221
  Transmission Date: 20110411
  Serious: Yes (Death, Other)
  Sender: FDA-Public Use
  Company Number: US-PFIZER INC-2008154919

PATIENT
  Sex: Female
  Weight: 85 kg

DRUGS (6)
  1. LYRICA [Suspect]
     Indication: NEUROPATHY PERIPHERAL
     Dosage: 225 MG, 2X/DAY
     Route: 048
  2. METFORMIN [Concomitant]
     Dosage: UNK
     Route: 048
  3. LANTUS [Concomitant]
     Dosage: UNK
     Route: 048
  4. ARMOUR THYROID [Concomitant]
     Dosage: UNK
     Route: 048
  5. LOVASTATIN [Concomitant]
     Dosage: UNK
     Route: 048
  6. METOPROLOL TARTRATE [Concomitant]
     Dosage: UNK
     Route: 048

REACTIONS (2)
  - DEATH [None]
  - OESOPHAGEAL CARCINOMA [None]
